FAERS Safety Report 20822364 (Version 1)
Quarter: 2022Q2

REPORT INFORMATION
  Report Type: Spontaneous
  Country: AU (occurrence: AU)
  Receive Date: 20220512
  Receipt Date: 20220512
  Transmission Date: 20220721
  Serious: No
  Sender: FDA-Public Use
  Company Number: AU-PFIZER INC-202200681131

PATIENT

DRUGS (1)
  1. PAXLOVID [Suspect]
     Active Substance: NIRMATRELVIR\RITONAVIR
     Indication: Immunosuppression
     Dosage: UNK

REACTIONS (3)
  - Drug ineffective [Unknown]
  - Off label use [Unknown]
  - Product prescribing error [Unknown]
